FAERS Safety Report 24246899 (Version 1)
Quarter: 2024Q3

REPORT INFORMATION
  Report Type: Spontaneous
  Country: FR (occurrence: FR)
  Receive Date: 20240826
  Receipt Date: 20240826
  Transmission Date: 20241016
  Serious: Yes (Death, Other)
  Sender: AUROBINDO
  Company Number: FR-AUROBINDO-AUR-APL-2024-040713

PATIENT
  Age: 34 Year
  Sex: Male

DRUGS (5)
  1. PEMETREXED [Suspect]
     Active Substance: PEMETREXED
     Indication: Lung adenocarcinoma
     Dosage: 500 MILLIGRAM, EVERY 3 WEEKS
     Route: 065
     Dates: start: 20230110
  2. CARBOPLATIN [Suspect]
     Active Substance: CARBOPLATIN
     Indication: Lung adenocarcinoma
     Dosage: UNK (5 AUC)
     Route: 065
  3. ALECTINIB [Suspect]
     Active Substance: ALECTINIB
     Indication: Lung adenocarcinoma
     Dosage: 1200 MILLIGRAM, DAILY
     Route: 065
     Dates: start: 202210
  4. BRIGATINIB [Suspect]
     Active Substance: BRIGATINIB
     Indication: Lung adenocarcinoma
     Dosage: 180 MILLIGRAM, ONCE A DAY (AS SECOND LINE OF TREATMENT)
     Route: 065
     Dates: start: 202212
  5. LORLATINIB [Suspect]
     Active Substance: LORLATINIB
     Indication: Lung adenocarcinoma
     Dosage: 100 MILLIGRAM, DAILY (AS FOURTH-LINE TREATMENT FOR 10 DAYS)
     Route: 065
     Dates: start: 202302

REACTIONS (1)
  - Drug ineffective [Fatal]
